FAERS Safety Report 16219257 (Version 1)
Quarter: 2019Q2

REPORT INFORMATION
  Report Type: Spontaneous
  Country: PL (occurrence: PL)
  Receive Date: 20190419
  Receipt Date: 20190419
  Transmission Date: 20190711
  Serious: Yes (Life-Threatening)
  Sender: FDA-Public Use
  Company Number: PHHY2019PL090516

PATIENT
  Sex: Female

DRUGS (1)
  1. AMOKSIKLAV [Suspect]
     Active Substance: AMOXICILLIN\CLAVULANATE POTASSIUM
     Indication: AMNIORRHOEA
     Dosage: 1.2 G, UNK (DRUG ADMINISTERED PARENTERALLY DILUTED WITH NORMAL SALINA)
     Route: 042

REACTIONS (8)
  - Localised oedema [Recovering/Resolving]
  - Back pain [Recovering/Resolving]
  - Tongue oedema [Recovering/Resolving]
  - Oedema peripheral [Recovering/Resolving]
  - Abdominal pain lower [Recovering/Resolving]
  - Face oedema [Recovering/Resolving]
  - Anxiety [Recovering/Resolving]
  - Dyspnoea [Recovering/Resolving]

NARRATIVE: CASE EVENT DATE: 20141125
